FAERS Safety Report 13740594 (Version 1)
Quarter: 2017Q3

REPORT INFORMATION
  Report Type: Spontaneous
  Country: US (occurrence: US)
  Receive Date: 20170710
  Receipt Date: 20170710
  Transmission Date: 20171127
  Serious: No
  Sender: FDA-Public Use
  Company Number: None

PATIENT
  Age: 48 Year
  Sex: Female

DRUGS (1)
  1. ENBREL [Suspect]
     Active Substance: ETANERCEPT
     Indication: RHEUMATOID ARTHRITIS
     Dosage: ?          OTHER DOSE:MG;OTHER FREQUENCY:WEEKLY;?
     Route: 058
     Dates: start: 20160630, end: 20170710

REACTIONS (1)
  - Psoriasis [None]

NARRATIVE: CASE EVENT DATE: 20170710
